FAERS Safety Report 4477129-5 (Version None)
Quarter: 2004Q4

REPORT INFORMATION
  Report Type: 
  Country: None (occurrence: None)
  Receive Date: 20041013
  Receipt Date: 20041006
  Transmission Date: 20050328
  Serious: Yes (Hospitalization)
  Sender: FDA-Public Use
  Company Number: A044-002-005233

PATIENT
  Age: 58 Year
  Sex: Female

DRUGS (5)
  1. ARICEPT [Suspect]
     Indication: DEMENTIA ALZHEIMER'S TYPE
     Dosage: UNKNOWN, 1 IN 1 D; ORAL
     Route: 048
     Dates: start: 19980816
  2. ALPHA TOCOPHEROL (TOCOPHEROL) [Concomitant]
  3. METFORMIN HCL [Concomitant]
  4. RANITIDINE [Concomitant]
  5. ANTIDEPRESSANT [Concomitant]

REACTIONS (6)
  - ABDOMINAL PAIN [None]
  - ENCEPHALOPATHY [None]
  - MYOCARDIAL INFARCTION [None]
  - PNEUMONIA [None]
  - PULMONARY OEDEMA [None]
  - TREMOR [None]
